FAERS Safety Report 8424002 (Version 2)
Quarter: 2014Q1

REPORT INFORMATION
  Report Type: Spontaneous
  Country: US (occurrence: US)
  Receive Date: 20120224
  Receipt Date: 20140116
  Transmission Date: 20141002
  Serious: Yes (Other)
  Sender: FDA-Public Use
  Company Number: US-BAYER-2012-016723

PATIENT
  Age: 20 Year
  Sex: Female
  Weight: 79 kg

DRUGS (6)
  1. YAZ [Suspect]
     Indication: CONTRACEPTION
     Dosage: UNK
     Dates: start: 2005, end: 2006
  2. OCELLA [Suspect]
     Indication: CONTRACEPTION
     Dosage: UNK
     Dates: start: 2005, end: 2006
  3. CIPRO [Concomitant]
     Dosage: 500 MG, EVERY 12 HOURS
     Route: 048
  4. IBUPROFEN [Concomitant]
     Dosage: 800 MG, TID
     Route: 048
  5. FLEXERIL [Concomitant]
     Dosage: 10 MG, TID
     Route: 048
  6. VICODIN [Concomitant]
     Dosage: UNK UNK, BID
     Route: 048

REACTIONS (3)
  - Cholelithiasis [Recovered/Resolved]
  - Pain [Recovered/Resolved]
  - Back pain [Recovered/Resolved]
